FAERS Safety Report 7291236-3 (Version None)
Quarter: 2011Q1

REPORT INFORMATION
  Report Type: 
  Country: None (occurrence: None)
  Receive Date: 20110214
  Receipt Date: 20110203
  Transmission Date: 20110831
  Serious: Yes (Hospitalization, Other)
  Sender: FDA-Public Use
  Company Number: US-JNJFOC-20110201846

PATIENT
  Sex: Male
  Weight: 63.5 kg

DRUGS (11)
  1. ANTIHISTAMINES [Concomitant]
     Indication: PREMEDICATION
  2. REMICADE [Suspect]
     Route: 042
  3. ACETAMINOPHEN [Concomitant]
     Indication: PREMEDICATION
  4. ANTIBIOTICS [Concomitant]
  5. ACETAMINOPHEN [Concomitant]
  6. REMICADE [Suspect]
     Indication: CROHN'S DISEASE
     Route: 042
  7. ANTIHISTAMINES [Concomitant]
  8. ANTIHISTAMINES [Concomitant]
  9. STEROIDS NOS [Concomitant]
     Indication: PREMEDICATION
  10. REMICADE [Suspect]
     Dosage: 36 DOSES
     Route: 042
  11. ACETAMINOPHEN [Concomitant]

REACTIONS (2)
  - ILEAL STENOSIS [None]
  - SMALL INTESTINAL PERFORATION [None]
